FAERS Safety Report 7322154-X (Version None)
Quarter: 2011Q1

REPORT INFORMATION
  Report Type: 
  Country: None (occurrence: None)
  Receive Date: 20110228
  Receipt Date: 20110225
  Transmission Date: 20110831
  Serious: Yes (Hospitalization)
  Sender: FDA-Public Use
  Company Number: JP-ABBOTT-11P-087-0702595-00

PATIENT
  Sex: Female

DRUGS (11)
  1. HUMIRA [Suspect]
     Indication: RHEUMATOID ARTHRITIS
     Route: 058
     Dates: start: 20100301, end: 20100921
  2. ATORVASTATIN CALCIUM [Concomitant]
     Indication: PRODUCT USED FOR UNKNOWN INDICATION
     Route: 048
     Dates: start: 20091228, end: 20101213
  3. CALCITRIOL [Concomitant]
     Indication: PROPHYLAXIS
     Route: 048
     Dates: start: 20091109, end: 20101213
  4. LANSOPRAZOLE [Concomitant]
  5. CALCITRIOL [Concomitant]
  6. ALENDRONATE SODIUM [Concomitant]
  7. LANSOPRAZOLE [Concomitant]
     Indication: PROPHYLAXIS
     Route: 048
     Dates: start: 20091228, end: 20101213
  8. KETOPROFEN [Concomitant]
     Indication: RHEUMATOID ARTHRITIS
     Route: 062
     Dates: start: 20100906, end: 20101213
  9. ALENDRONATE SODIUM [Concomitant]
     Indication: ADVERSE DRUG REACTION
     Route: 048
     Dates: start: 20091130, end: 20101213
  10. METOCLOPRAMIDE HCL [Concomitant]
     Indication: ADVERSE DRUG REACTION
     Route: 048
     Dates: start: 20100906, end: 20100927
  11. METOCLOPRAMIDE HCL [Concomitant]

REACTIONS (3)
  - HYPONATRAEMIA [None]
  - FALL [None]
  - ENCEPHALITIS [None]
